FAERS Safety Report 4960764-5 (Version None)
Quarter: 2006Q2

REPORT INFORMATION
  Report Type: 
  Country: None (occurrence: None)
  Receive Date: 20060403
  Receipt Date: 20051206
  Transmission Date: 20061013
  Serious: Yes (Hospitalization, Disabling)
  Sender: FDA-Public Use
  Company Number: US-MERCK-0512USA01052

PATIENT
  Age: 50 Year
  Sex: Male
  Weight: 63 kg

DRUGS (4)
  1. VIOXX [Suspect]
     Indication: PROCEDURAL PAIN
     Route: 048
     Dates: start: 20020101, end: 20040101
  2. VITAMIN E [Concomitant]
     Route: 065
     Dates: end: 20040101
  3. TYLENOL (CAPLET) [Concomitant]
     Route: 065
  4. IBUPROFEN [Concomitant]
     Route: 065

REACTIONS (10)
  - ABDOMINAL DISCOMFORT [None]
  - ANGINA PECTORIS [None]
  - ANGINA UNSTABLE [None]
  - DEPRESSION [None]
  - DYSPEPSIA [None]
  - DYSPNOEA [None]
  - HYPOTENSION [None]
  - JOINT INJURY [None]
  - NERVE INJURY [None]
  - VASOSPASM [None]
